FAERS Safety Report 5582771-4 (Version None)
Quarter: 2008Q1

REPORT INFORMATION
  Report Type: 
  Country: None (occurrence: None)
  Receive Date: 20080107
  Receipt Date: 20071119
  Transmission Date: 20080703
  Serious: No
  Sender: FDA-Public Use
  Company Number: US-BOEHRINGER INGELHEIM PHARMACEUTICALS, INC.-2007-BP-26853BP

PATIENT

DRUGS (1)
  1. ATROVENT HFA [Suspect]

REACTIONS (2)
  - DYSPNOEA [None]
  - DYSPNOEA EXERTIONAL [None]
